FAERS Safety Report 8841225 (Version 2)
Quarter: 2012Q4

REPORT INFORMATION
  Report Type: Report from Study
  Country: FR (occurrence: FR)
  Receive Date: 20121015
  Receipt Date: 20121019
  Transmission Date: 20130627
  Serious: Yes (Hospitalization)
  Sender: FDA-Public Use
  Company Number: FR-ROCHE-1143950

PATIENT
  Age: 59 Year
  Sex: Male

DRUGS (10)
  1. SOMATROPIN [Suspect]
     Indication: GROWTH HORMONE DEFICIENCY
     Route: 058
     Dates: start: 20061128, end: 20090603
  2. LAMICTAL [Concomitant]
     Route: 065
     Dates: start: 20090318
  3. LEVOTHYROXINE [Concomitant]
     Route: 065
  4. HYDROCORTISONE [Concomitant]
     Route: 065
     Dates: start: 20070306
  5. CORGARD [Concomitant]
     Route: 065
     Dates: start: 2008
  6. KARDEGIC [Concomitant]
     Route: 065
  7. KALEORID [Concomitant]
     Route: 065
     Dates: start: 2008
  8. IXEL [Concomitant]
     Route: 065
  9. SIMVASTATINE [Concomitant]
     Route: 065
  10. RISPERDAL [Concomitant]
     Route: 065
     Dates: start: 20090318

REACTIONS (2)
  - Disorientation [Not Recovered/Not Resolved]
  - Agitation [Not Recovered/Not Resolved]
